FAERS Safety Report 12741692 (Version 3)
Quarter: 2017Q1

REPORT INFORMATION
  Report Type: Spontaneous
  Country: US (occurrence: US)
  Receive Date: 20160914
  Receipt Date: 20170118
  Transmission Date: 20170428
  Serious: No
  Sender: FDA-Public Use
  Company Number: US-GLAXOSMITHKLINE-US2016132051

PATIENT
  Sex: Female

DRUGS (2)
  1. TRANSDERM SCOP [Suspect]
     Active Substance: SCOPOLAMINE
     Indication: VOMITING
  2. TRANSDERM SCOP [Suspect]
     Active Substance: SCOPOLAMINE
     Indication: PROCEDURAL NAUSEA
     Dosage: UNK
     Dates: start: 20160815

REACTIONS (4)
  - Product quality issue [Unknown]
  - Vomiting [Unknown]
  - Nausea [Unknown]
  - Influenza [Unknown]

NARRATIVE: CASE EVENT DATE: 20160905
